FAERS Safety Report 8881225 (Version 1)
Quarter: 2012Q4

REPORT INFORMATION
  Report Type: 
  Country: CA (occurrence: CA)
  Receive Date: 20121031
  Receipt Date: 20121031
  Transmission Date: 20130627
  Serious: Yes (Other)
  Sender: FDA-Public Use
  Company Number: PHHY2012CA097963

PATIENT
  Age: 78 Year
  Sex: Female

DRUGS (15)
  1. EXELON PATCH [Suspect]
     Dosage: 9.5 mg / 24 hs
     Route: 062
  2. EXELON PATCH [Suspect]
     Dosage: 2 DF, 9.5 mg/24hs
     Route: 062
  3. EXELON PATCH [Suspect]
     Dosage: 2 DF, 9.5 mg/24hs
     Route: 062
  4. APO HYDROXYQUINE [Concomitant]
  5. ATENOLOL [Concomitant]
  6. CALCIO [Concomitant]
  7. K-DUR [Concomitant]
  8. LIPITOR [Concomitant]
  9. LYRICA [Concomitant]
  10. METFORMIN [Concomitant]
  11. NEXIUM [Concomitant]
  12. SEROQUEL [Concomitant]
  13. TIMOPTIC [Concomitant]
  14. MULTIVITAMINS [Concomitant]
  15. ZOLOFT [Concomitant]

REACTIONS (7)
  - Joint swelling [Recovered/Resolved]
  - Fall [Recovered/Resolved]
  - Diarrhoea [Recovered/Resolved]
  - Hallucination [Recovered/Resolved]
  - Weight decreased [Recovered/Resolved]
  - Medication error [Recovered/Resolved]
  - Incorrect dose administered [Recovered/Resolved]
